FAERS Safety Report 13839257 (Version 1)
Quarter: 2017Q3

REPORT INFORMATION
  Report Type: Spontaneous
  Country: US (occurrence: US)
  Receive Date: 20170806
  Receipt Date: 20170806
  Transmission Date: 20171127
  Serious: Yes (Disabling, Other)
  Sender: FDA-Public Use
  Company Number: None

PATIENT
  Age: 26 Year
  Sex: Female
  Weight: 54.43 kg

DRUGS (2)
  1. PARAGARD T 380A [Suspect]
     Active Substance: COPPER
     Dates: start: 20160922, end: 20161215
  2. HERBAL REMEDIES OF BLUE POPPY ORIGINALS CHANGE + ENRICH FORMULA (CHINESE HERBS) [Concomitant]

REACTIONS (23)
  - Liver disorder [None]
  - Dyspepsia [None]
  - Malaise [None]
  - Dysmenorrhoea [None]
  - Migraine [None]
  - Stress [None]
  - Fatigue [None]
  - Hypophagia [None]
  - Adrenal disorder [None]
  - Anxiety [None]
  - Tachyphrenia [None]
  - Obsessive-compulsive disorder [None]
  - Bowel movement irregularity [None]
  - Feeling abnormal [None]
  - Muscle tightness [None]
  - Emotional disorder [None]
  - Crying [None]
  - Metal poisoning [None]
  - Quality of life decreased [None]
  - Hypoacusis [None]
  - Nausea [None]
  - Cerebral disorder [None]
  - Balance disorder [None]

NARRATIVE: CASE EVENT DATE: 20161012
